FAERS Safety Report 14557912 (Version 3)
Quarter: 2018Q2

REPORT INFORMATION
  Report Type: Spontaneous
  Country: JP (occurrence: JP)
  Receive Date: 20180221
  Receipt Date: 20180515
  Transmission Date: 20180711
  Serious: Yes (Life-Threatening, Hospitalization, Other)
  Sender: FDA-Public Use
  Company Number: JP-PFIZER INC-2018070969

PATIENT
  Age: 68 Year
  Sex: Female
  Weight: 40 kg

DRUGS (2)
  1. FASLODEX [Suspect]
     Active Substance: FULVESTRANT
     Indication: BREAST CANCER RECURRENT
     Dosage: 500 MG, 1X/DAY
     Route: 030
     Dates: start: 20180125, end: 20180209
  2. IBRANCE [Suspect]
     Active Substance: PALBOCICLIB
     Indication: BREAST CANCER RECURRENT
     Dosage: 125 MG, DAILY
     Route: 048
     Dates: start: 20180210, end: 20180211

REACTIONS (6)
  - Haemoglobin decreased [Unknown]
  - Cardiac arrest [Recovered/Resolved]
  - Red blood cell count decreased [Unknown]
  - Syncope [Recovered/Resolved]
  - White blood cell count decreased [Unknown]
  - Neutrophil count decreased [Unknown]

NARRATIVE: CASE EVENT DATE: 20180211
